FAERS Safety Report 7770903-9 (Version None)
Quarter: 2011Q3

REPORT INFORMATION
  Report Type: 
  Country: None (occurrence: None)
  Receive Date: 20110922
  Receipt Date: 20110223
  Transmission Date: 20111222
  Serious: No
  Sender: FDA-Public Use
  Company Number: US-ASTRAZENECA-2007UW02170

PATIENT
  Age: 12586 Day
  Sex: Female
  Weight: 64.4 kg

DRUGS (33)
  1. SEROQUEL [Suspect]
     Indication: BIPOLAR DISORDER
     Route: 048
     Dates: start: 19990119
  2. TOPAMAX [Concomitant]
     Dates: start: 20020101, end: 20030101
  3. TRAZODONE HYDROCHLORIDE [Concomitant]
     Dates: start: 20020101
  4. CLONIDINE HCL [Concomitant]
     Dates: start: 20010228
  5. VICOPROFEN [Concomitant]
     Dosage: 200/7.5
     Dates: start: 20010423
  6. FLEXERIL [Concomitant]
     Dosage: 10 MG ONE TABLET AT BEDTIME AS NEEDED
     Route: 048
     Dates: start: 20060101
  7. LIPITOR [Concomitant]
     Route: 048
     Dates: start: 20060101
  8. PROZAC [Concomitant]
     Route: 048
     Dates: start: 20060101
  9. GEODON [Concomitant]
     Route: 048
     Dates: start: 20060101
  10. HALDOL [Concomitant]
     Dates: start: 20010101
  11. HALDOL [Concomitant]
     Dosage: 2 MG, 5 MG DISPENSED
     Dates: start: 20010228
  12. THORAZINE [Concomitant]
     Route: 048
     Dates: start: 20060101
  13. ZYPREXA [Concomitant]
     Dosage: 5-20 MG
     Dates: start: 20000101, end: 20030101
  14. CLONAZEPAM [Concomitant]
     Dates: start: 20010228
  15. BUSPAR [Concomitant]
     Dates: start: 20010404
  16. AMBIEN [Concomitant]
     Dates: start: 20010305
  17. ZANAFLEX [Concomitant]
     Dates: start: 20010314
  18. ULTRAM [Concomitant]
     Dates: start: 20010315
  19. RISPERDAL [Concomitant]
     Dates: start: 19990101, end: 20020101
  20. THORAZINE [Concomitant]
     Dates: start: 20040101
  21. ZYPREXA [Concomitant]
     Dosage: 10 MG 2002
  22. VIOXX [Concomitant]
     Dates: start: 20010531
  23. PROTONIX [Concomitant]
     Route: 048
     Dates: start: 20060101
  24. GEODON [Concomitant]
     Dates: start: 20030101
  25. CELEXA [Concomitant]
     Dates: start: 20010101, end: 20030101
  26. DOXEPIN [Concomitant]
     Dates: start: 20010429
  27. SEROQUEL [Suspect]
     Dosage: 25-300 MG
     Route: 048
     Dates: start: 20010620, end: 20040401
  28. ABILIFY [Concomitant]
     Dates: start: 20040101
  29. ZYPREXA [Concomitant]
     Dosage: 10-20 MG 2003
  30. CELEXA [Concomitant]
     Dates: start: 20000101, end: 20010101
  31. CELEXA [Concomitant]
     Dates: start: 20010305
  32. TEMAZEPAM [Concomitant]
     Dosage: 15 MG, 30 MG DISPENSED
     Dates: start: 20010228
  33. OXYCODONE W APAP/PERCOCET [Concomitant]
     Indication: PAIN
     Dosage: 5/325 ONE BY MOUTH THREE TIMES A DAY AS NEEDED
     Dates: start: 20010531

REACTIONS (9)
  - SINUSITIS [None]
  - BRONCHITIS [None]
  - BACK PAIN [None]
  - HYPERLIPIDAEMIA [None]
  - TYPE 2 DIABETES MELLITUS [None]
  - BLOOD CHOLESTEROL INCREASED [None]
  - UPPER RESPIRATORY TRACT INFECTION [None]
  - COUGH [None]
  - NECK PAIN [None]
